FAERS Safety Report 8106839-3 (Version None)
Quarter: 2012Q1

REPORT INFORMATION
  Report Type: 
  Country: None (occurrence: None)
  Receive Date: 20120202
  Receipt Date: 20120126
  Transmission Date: 20120608
  Serious: Yes (Hospitalization)
  Sender: FDA-Public Use
  Company Number: US-ASTELLAS-2012US000967

PATIENT
  Sex: Female

DRUGS (1)
  1. ERLOTINIB HYDROCHLORIDE [Suspect]
     Indication: PRODUCT USED FOR UNKNOWN INDICATION
     Dosage: 150 MG, UNKNOWN/D
     Route: 048
     Dates: start: 20111227

REACTIONS (9)
  - OROPHARYNGEAL PAIN [None]
  - DYSPHAGIA [None]
  - DEHYDRATION [None]
  - HOSPICE CARE [None]
  - ASTHENIA [None]
  - RASH [None]
  - STOMATITIS [None]
  - DRY SKIN [None]
  - NAIL BED BLEEDING [None]
